FAERS Safety Report 18222526 (Version 1)
Quarter: 2020Q3

REPORT INFORMATION
  Report Type: Report from Study
  Country: IT (occurrence: IT)
  Receive Date: 20200902
  Receipt Date: 20200902
  Transmission Date: 20201103
  Serious: Yes (Other)
  Sender: FDA-Public Use
  Company Number: IT-JNJFOC-20200838285

PATIENT
  Age: 61 Year
  Sex: Female

DRUGS (3)
  1. ALONEB [Concomitant]
     Active Substance: HYDROCHLOROTHIAZIDE\NEBIVOLOL HYDROCHLORIDE
     Dosage: UNK
  2. RIVAROXABAN [Suspect]
     Active Substance: RIVAROXABAN
     Indication: PRODUCT USED FOR UNKNOWN INDICATION
     Route: 048
  3. FOSTER [PIROXICAM] [Concomitant]
     Dosage: UNK

REACTIONS (3)
  - Headache [Unknown]
  - Epistaxis [Unknown]
  - Nausea [Unknown]

NARRATIVE: CASE EVENT DATE: 20200525
